FAERS Safety Report 7596466-9 (Version None)
Quarter: 2011Q3

REPORT INFORMATION
  Report Type: 
  Country: None (occurrence: None)
  Receive Date: 20110708
  Receipt Date: 20110701
  Transmission Date: 20111222
  Serious: Yes (Hospitalization)
  Sender: FDA-Public Use
  Company Number: US-BIOGENIDEC-2009BI034048

PATIENT
  Age: 61 Year
  Sex: Male

DRUGS (2)
  1. AVONEX [Suspect]
     Indication: MULTIPLE SCLEROSIS
     Route: 030
     Dates: start: 20070717, end: 20080805
  2. AVONEX [Suspect]
     Route: 030
     Dates: start: 20090202, end: 20110201

REACTIONS (6)
  - OVERWEIGHT [None]
  - ABASIA [None]
  - ANAESTHETIC COMPLICATION PULMONARY [None]
  - DIABETES MELLITUS [None]
  - VISUAL IMPAIRMENT [None]
  - MULTIPLE SCLEROSIS RELAPSE [None]
